FAERS Safety Report 24217185 (Version 1)
Quarter: 2024Q3

REPORT INFORMATION
  Report Type: Report from Study
  Country: ZA (occurrence: None)
  Receive Date: 20240816
  Receipt Date: 20240816
  Transmission Date: 20241016
  Serious: Yes (Hospitalization, Other)
  Sender: ASTRAZENECA
  Company Number: 2023A213523

PATIENT
  Age: 26 Year
  Sex: Male

DRUGS (2)
  1. BUDESONIDE\FORMOTEROL FUMARATE DIHYDRATE [Suspect]
     Active Substance: BUDESONIDE\FORMOTEROL FUMARATE DIHYDRATE
     Indication: Asthma
     Dosage: 160 UG/INHAL, DAILY
     Route: 055
  2. STRADEXA [Concomitant]
     Indication: Neoplasm malignant
     Route: 048

REACTIONS (1)
  - Neoplasm malignant [Unknown]
